FAERS Safety Report 13745394 (Version 1)
Quarter: 2017Q3

REPORT INFORMATION
  Report Type: Report from Study
  Country: IL (occurrence: IL)
  Receive Date: 20170712
  Receipt Date: 20170712
  Transmission Date: 20171127
  Serious: Yes (Hospitalization)
  Sender: FDA-Public Use
  Company Number: IL-BAYER-2017-126477

PATIENT
  Sex: Male

DRUGS (1)
  1. BETAFERON [Suspect]
     Active Substance: INTERFERON BETA-1B
     Indication: MULTIPLE SCLEROSIS
     Dosage: UNK
     Dates: start: 19990815, end: 201702

REACTIONS (7)
  - Injection site reaction [Not Recovered/Not Resolved]
  - Gait disturbance [Not Recovered/Not Resolved]
  - Cellulitis [None]
  - Erythema [None]
  - Drug administered at inappropriate site [None]
  - Musculoskeletal stiffness [None]
  - Skin warm [None]
